FAERS Safety Report 8006388-7 (Version None)
Quarter: 2011Q4

REPORT INFORMATION
  Report Type: 
  Country: None (occurrence: None)
  Receive Date: 20111226
  Receipt Date: 20111220
  Transmission Date: 20120403
  Serious: Yes (Other)
  Sender: FDA-Public Use
  Company Number: PHHY2011DE90974

PATIENT
  Sex: Female

DRUGS (1)
  1. GILENYA [Suspect]
     Indication: MULTIPLE SCLEROSIS
     Dosage: 0.5 MG, QD
     Route: 048
     Dates: start: 20110712

REACTIONS (11)
  - HUMERUS FRACTURE [None]
  - C-REACTIVE PROTEIN INCREASED [None]
  - GAMMA-GLUTAMYLTRANSFERASE INCREASED [None]
  - LYMPHOCYTE COUNT DECREASED [None]
  - WHITE BLOOD CELL COUNT INCREASED [None]
  - MEAN CELL VOLUME INCREASED [None]
  - MUSCULOSKELETAL PAIN [None]
  - INFLAMMATION [None]
  - CYSTITIS [None]
  - EOSINOPHIL COUNT INCREASED [None]
  - SMEAR CERVIX ABNORMAL [None]
